FAERS Safety Report 4377715-7 (Version None)
Quarter: 2004Q2

REPORT INFORMATION
  Report Type: 
  Country: None (occurrence: None)
  Receive Date: 20040615
  Receipt Date: 20040603
  Transmission Date: 20050107
  Serious: Yes (Hospitalization)
  Sender: FDA-Public Use
  Company Number: US-BRISTOL-MYERS SQUIBB COMPANY-12603734

PATIENT
  Age: 87 Year
  Sex: Male

DRUGS (4)
  1. COUMADIN [Suspect]
     Indication: ATRIAL FIBRILLATION
     Dosage: HELD ON 19-APR-2004; 23-APR-2004: THERAPY TO BE RESTARTED.
  2. COUMADIN [Suspect]
     Indication: CARDIAC PACEMAKER INSERTION
     Dosage: HELD ON 19-APR-2004; 23-APR-2004: THERAPY TO BE RESTARTED.
  3. NATEGLINIDE [Concomitant]
     Indication: GLUCOSE TOLERANCE IMPAIRED
     Dosage: BEGAN 26-MAR-2003 VERSUS 26-SEP-2003;TABLET-LEVEL 1; LEVEL 2 AT TIME OF EVENT (19-APR-04)
     Route: 048
     Dates: start: 20030101
  4. VALSARTAN [Concomitant]
     Indication: CARDIOVASCULAR DISORDER
     Dosage: BEGAN 26-MAR-2003 VERSUS 26-SEP-2003;CAPSULE-LEVEL 1; LEVEL 2 AT TIME OF EVENT (19-APR-04)
     Route: 048
     Dates: start: 20030101

REACTIONS (7)
  - ANTICOAGULATION DRUG LEVEL ABOVE THERAPEUTIC [None]
  - ASTHENIA [None]
  - CARDIAC FAILURE CONGESTIVE [None]
  - DYSPNOEA [None]
  - HAEMOPTYSIS [None]
  - HYPOKALAEMIA [None]
  - INTERNATIONAL NORMALISED RATIO INCREASED [None]
